FAERS Safety Report 9164754 (Version 1)
Quarter: 2013Q1

REPORT INFORMATION
  Report Type: Spontaneous
  Country: DK (occurrence: None)
  Receive Date: 20130226
  Receipt Date: 20130226
  Transmission Date: 20140127
  Serious: Yes (Hospitalization)
  Sender: FDA-Public Use
  Company Number: 2013MA001245

PATIENT
  Age: 87 Year
  Sex: Male

DRUGS (6)
  1. DONEPEZIL HYDROCHLORIDE [Suspect]
     Indication: DEMENTIA
     Route: 048
     Dates: end: 20130130
  2. CIMETIDINE [Suspect]
  3. SIMVASTATIN [Concomitant]
  4. THIAMINE? HYDROCHLORIDE [Concomitant]
  5. VITAMIN B COMPLEX STRONG [Concomitant]
  6. FYBOGEL MEBEVERINE [Concomitant]

REACTIONS (4)
  - Hyperhidrosis [None]
  - Cold sweat [None]
  - Vomiting [None]
  - Loss of consciousness [None]
